FAERS Safety Report 20770713 (Version 1)
Quarter: 2022Q2

REPORT INFORMATION
  Report Type: Spontaneous
  Country: US (occurrence: US)
  Receive Date: 20220429
  Receipt Date: 20220429
  Transmission Date: 20220720
  Serious: No
  Sender: FDA-Public Use
  Company Number: US-Ipsen Biopharmaceuticals, Inc.-2022-11639

PATIENT
  Age: 71 Year
  Sex: Female

DRUGS (2)
  1. SOMATULINE DEPOT [Suspect]
     Active Substance: LANREOTIDE ACETATE
     Indication: Neuroendocrine tumour
     Dosage: 1 SYRINGE
     Route: 065
     Dates: start: 2021
  2. CORONA VACCINE [Concomitant]

REACTIONS (1)
  - Lipoma [Not Recovered/Not Resolved]
